FAERS Safety Report 11779811 (Version 5)
Quarter: 2016Q1

REPORT INFORMATION
  Report Type: Spontaneous
  Country: JP (occurrence: JP)
  Receive Date: 20151125
  Receipt Date: 20160222
  Transmission Date: 20160525
  Serious: Yes (Life-Threatening, Other)
  Sender: FDA-Public Use
  Company Number: JP-TEVA-2015-JP-002363J

PATIENT
  Age: 8 Year
  Sex: Male
  Weight: 27 kg

DRUGS (1)
  1. SAXIZON [Suspect]
     Active Substance: HYDROCORTISONE SODIUM SUCCINATE
     Indication: ASTHMA
     Dosage: 230 MILLIGRAM DAILY;
     Route: 042
     Dates: start: 20151106, end: 20151106

REACTIONS (1)
  - Anaphylactic shock [Recovered/Resolved]

NARRATIVE: CASE EVENT DATE: 20151106
